FAERS Safety Report 5658273-3 (Version None)
Quarter: 2008Q1

REPORT INFORMATION
  Report Type: 
  Country: None (occurrence: None)
  Receive Date: 20080310
  Receipt Date: 20070305
  Transmission Date: 20080703
  Serious: Yes (Other)
  Sender: FDA-Public Use
  Company Number: US-BAYER-200710264BCC

PATIENT
  Age: 71 Year
  Sex: Female
  Weight: 68 kg

DRUGS (2)
  1. ALEVE [Suspect]
     Indication: MUSCULOSKELETAL PAIN
     Dosage: TOTAL DAILY DOSE: 220 MG  UNIT DOSE: 220 MG
     Route: 048
     Dates: start: 20070119, end: 20070121
  2. SIX MEDICATIONS FOR HIGH BLOOD PRESSURE [Concomitant]

REACTIONS (1)
  - BLOOD PRESSURE INCREASED [None]
